FAERS Safety Report 23256868 (Version 6)
Quarter: 2025Q4

REPORT INFORMATION
  Report Type: Spontaneous
  Country: EU (occurrence: EU)
  Receive Date: 20231204
  Receipt Date: 20251219
  Transmission Date: 20260118
  Serious: Yes (Hospitalization, Other)
  Sender: AUROBINDO
  Company Number: EU-BAYER-2023A141483

PATIENT
  Age: 46 Year
  Sex: Female
  Weight: 70 kg

DRUGS (15)
  1. DICLOFENAC [Suspect]
     Active Substance: DICLOFENAC
     Indication: Product used for unknown indication
     Dosage: UNK
     Route: 065
  2. CYPROTERONE ACETATE [Suspect]
     Active Substance: CYPROTERONE ACETATE
     Indication: Product used for unknown indication
     Dosage: 25 MG (1/2 TABLET PER DAY, 20 DAYS PER MONTH) UNTIL 2018
     Route: 061
  3. CYPROTERONE ACETATE [Suspect]
     Active Substance: CYPROTERONE ACETATE
     Dosage: 25 MILLIGRAM
     Route: 061
  4. CYPROTERONE ACETATE [Suspect]
     Active Substance: CYPROTERONE ACETATE
     Indication: Product used for unknown indication
     Dosage: UNK
     Route: 061
  5. DIANE (CYPROTERONE ACETATE\ETHINYL ESTRADIOL) [Suspect]
     Active Substance: CYPROTERONE ACETATE\ETHINYL ESTRADIOL
     Indication: Acne
     Dosage: UNK
     Route: 061
     Dates: start: 19980129, end: 20040123
  6. XANAX XR [Concomitant]
     Active Substance: ALPRAZOLAM
     Indication: Product used for unknown indication
     Dosage: UNK
     Route: 065
  7. ESTRADIOL [Concomitant]
     Active Substance: ESTRADIOL
     Indication: Product used for unknown indication
     Dosage: UNK
     Route: 065
  8. SORBITOL [Concomitant]
     Active Substance: SORBITOL
     Indication: Product used for unknown indication
     Dosage: UNK
     Route: 065
  9. SERTRALINE [Concomitant]
     Active Substance: SERTRALINE HYDROCHLORIDE
     Indication: Product used for unknown indication
     Dosage: UNK
     Route: 065
  10. ZOPICLONE [Concomitant]
     Active Substance: ZOPICLONE
     Indication: Product used for unknown indication
     Dosage: UNK
     Route: 065
  11. OMEPRAZOLE [Concomitant]
     Active Substance: OMEPRAZOLE
     Indication: Product used for unknown indication
     Dosage: UNK
     Route: 065
  12. LORAZEPAM [Concomitant]
     Active Substance: LORAZEPAM
     Indication: Product used for unknown indication
     Dosage: UNK
     Route: 065
  13. OXAZEPAM [Concomitant]
     Active Substance: OXAZEPAM
     Indication: Product used for unknown indication
     Dosage: UNK
     Route: 065
  14. ZOLOFT [Concomitant]
     Active Substance: SERTRALINE HYDROCHLORIDE
     Indication: Product used for unknown indication
     Dosage: UNK
     Route: 065
  15. PROZAC [Concomitant]
     Active Substance: FLUOXETINE HYDROCHLORIDE
     Indication: Product used for unknown indication
     Dosage: UNK
     Route: 065

REACTIONS (33)
  - Depression [Unknown]
  - Hemiparesis [Unknown]
  - Meningioma [Unknown]
  - Suicidal ideation [Unknown]
  - Partial seizures [Unknown]
  - Musculoskeletal pain [Unknown]
  - Fatigue [Unknown]
  - Asthenia [Unknown]
  - Headache [Unknown]
  - Paraesthesia [Unknown]
  - Neck pain [Unknown]
  - Burnout syndrome [Unknown]
  - Arthralgia [Unknown]
  - Migraine [Unknown]
  - Sleep disorder [Unknown]
  - Tinnitus [Unknown]
  - Feeling drunk [Unknown]
  - Visual impairment [Unknown]
  - Poor quality sleep [Unknown]
  - Cervicobrachial syndrome [Unknown]
  - Memory impairment [Unknown]
  - Dizziness [Unknown]
  - Occipital neuralgia [Unknown]
  - Lymph node pain [Unknown]
  - Disturbance in attention [Unknown]
  - Fear [Unknown]
  - Alopecia areata [Unknown]
  - Disorientation [Unknown]
  - Menometrorrhagia [Unknown]
  - Sensory disturbance [Unknown]
  - Facial asymmetry [Unknown]
  - Social problem [Unknown]
  - Back pain [Unknown]

NARRATIVE: CASE EVENT DATE: 20090101
